FAERS Safety Report 9960171 (Version 2)
Quarter: 2014Q1

REPORT INFORMATION
  Report Type: Spontaneous
  Country: PR (occurrence: PR)
  Receive Date: 20140305
  Receipt Date: 20140305
  Transmission Date: 20141002
  Serious: Yes (Hospitalization)
  Sender: FDA-Public Use
  Company Number: PR-ABBVIE-13P-131-1058794-00

PATIENT
  Age: 45 Year
  Sex: Female
  Weight: 131.66 kg

DRUGS (9)
  1. HUMIRA [Suspect]
     Indication: PSORIATIC ARTHROPATHY
     Route: 058
     Dates: start: 201302, end: 201303
  2. HUMIRA [Suspect]
     Route: 058
     Dates: start: 201304
  3. CYMBALTA [Concomitant]
     Indication: MAJOR DEPRESSION
     Route: 048
  4. CLONAZEPAM [Concomitant]
     Indication: INSOMNIA
     Dosage: AT NIGHT
     Route: 048
  5. FOLIC ACID [Concomitant]
     Indication: VITAMIN SUPPLEMENTATION
     Route: 048
  6. PREDNISONE [Concomitant]
     Indication: ARTHRITIS
     Route: 048
  7. MELOXICAM [Concomitant]
     Indication: PAIN
     Route: 048
  8. METHOTREXATE [Concomitant]
     Indication: PSORIASIS
     Dosage: FIVE 2.5MG TABLETS WEEKLY = 12.5MG WEEKLY
     Route: 048
  9. EXCEDRIN [Concomitant]
     Indication: MIGRAINE
     Route: 048

REACTIONS (1)
  - Pneumonia [Recovered/Resolved]
